FAERS Safety Report 7830634-3 (Version None)
Quarter: 2011Q4

REPORT INFORMATION
  Report Type: 
  Country: None (occurrence: None)
  Receive Date: 20111021
  Receipt Date: 20111017
  Transmission Date: 20120403
  Serious: Yes (Hospitalization)
  Sender: FDA-Public Use
  Company Number: TW-ABBOTT-11P-153-0858017-00

PATIENT
  Sex: Female
  Weight: 55 kg

DRUGS (1)
  1. HUMIRA [Suspect]
     Indication: PRODUCT USED FOR UNKNOWN INDICATION
     Route: 058
     Dates: start: 20110323, end: 20110907

REACTIONS (25)
  - SYSTEMIC LUPUS ERYTHEMATOSUS [None]
  - LYMPHOMA [None]
  - MIXED CONNECTIVE TISSUE DISEASE [None]
  - COUGH [None]
  - HYPOKALAEMIA [None]
  - ACUTE TONSILLITIS [None]
  - ABDOMINAL PAIN UPPER [None]
  - PYREXIA [None]
  - SPLEEN DISORDER [None]
  - ABDOMINAL INFECTION [None]
  - THROMBOCYTOPENIA [None]
  - RHINORRHOEA [None]
  - DIARRHOEA [None]
  - TUBERCULOSIS [None]
  - SPLENOMEGALY [None]
  - ABSCESS [None]
  - SEPSIS [None]
  - RHEUMATOID ARTHRITIS [None]
  - NORMOCHROMIC NORMOCYTIC ANAEMIA [None]
  - SJOGREN'S SYNDROME [None]
  - ASCITES [None]
  - RENAL FAILURE CHRONIC [None]
  - CHOLECYSTITIS ACUTE [None]
  - OROPHARYNGEAL PAIN [None]
  - HEPATIC FUNCTION ABNORMAL [None]
